FAERS Safety Report 20826908 (Version 1)
Quarter: 2022Q2

REPORT INFORMATION
  Report Type: Spontaneous
  Country: US (occurrence: None)
  Receive Date: 20220513
  Receipt Date: 20220513
  Transmission Date: 20220721
  Serious: Yes (Hospitalization)
  Sender: FDA-Public Use
  Company Number: None

PATIENT
  Age: 39 Year
  Sex: Male
  Weight: 107.1 kg

DRUGS (6)
  1. CYTARABINE [Suspect]
     Active Substance: CYTARABINE
     Dates: end: 20220419
  2. DAUNORUBICIN [Suspect]
     Active Substance: DAUNORUBICIN
     Dates: end: 20220503
  3. DEXAMETHASONE [Suspect]
     Active Substance: DEXAMETHASONE
     Dates: end: 20220508
  4. METHOTREXATE [Suspect]
     Active Substance: METHOTREXATE
     Dates: end: 20220426
  5. PEGASPARGASE [Suspect]
     Active Substance: PEGASPARGASE
     Dosage: OTHER QUANTITY : 3750 UNIT;?
     Dates: end: 20220421
  6. VINCRISTINE SULFATE [Suspect]
     Active Substance: VINCRISTINE SULFATE
     Dates: end: 20220503

REACTIONS (6)
  - Asthenia [None]
  - Hypoaesthesia [None]
  - Oedema peripheral [None]
  - Pain in extremity [None]
  - Gait inability [None]
  - Deep vein thrombosis [None]

NARRATIVE: CASE EVENT DATE: 20220511
